FAERS Safety Report 4283947-9 (Version None)
Quarter: 2004Q1

REPORT INFORMATION
  Report Type: 
  Country: None (occurrence: None)
  Receive Date: 20040202
  Receipt Date: 20030404
  Transmission Date: 20041129
  Serious: Yes (Hospitalization)
  Sender: FDA-Public Use
  Company Number: WAES 0304USA00475

PATIENT
  Age: 44 Year
  Sex: Male
  Weight: 73 kg

DRUGS (8)
  1. VICODIN [Concomitant]
  2. BACLOFEN [Concomitant]
  3. DECADRON [Suspect]
     Indication: MULTIPLE SCLEROSIS
     Route: 048
     Dates: start: 20020101
  4. GLIPIZIDE [Concomitant]
  5. BETASERON [Suspect]
     Indication: MULTIPLE SCLEROSIS
     Route: 058
     Dates: start: 20020601
  6. ATIVAN [Concomitant]
     Dates: start: 20030125
  7. GLUCOPHAGE [Concomitant]
  8. DETROL [Concomitant]

REACTIONS (14)
  - AFFECT LABILITY [None]
  - CONDITION AGGRAVATED [None]
  - CONFUSIONAL STATE [None]
  - DEPRESSION [None]
  - EMOTIONAL DISORDER [None]
  - INSOMNIA [None]
  - MEDICATION ERROR [None]
  - MEMORY IMPAIRMENT [None]
  - MENTAL DISORDER [None]
  - MICTURITION DISORDER [None]
  - MOOD SWINGS [None]
  - MULTIPLE SCLEROSIS [None]
  - PYREXIA [None]
  - SUICIDAL IDEATION [None]
